FAERS Safety Report 15507144 (Version 1)
Quarter: 2018Q4

REPORT INFORMATION
  Report Type: Report from Study
  Country: CO (occurrence: CO)
  Receive Date: 20181016
  Receipt Date: 20181016
  Transmission Date: 20190205
  Serious: Yes (Hospitalization)
  Sender: FDA-Public Use
  Company Number: CO-INCYTE CORPORATION-2018IN010552

PATIENT

DRUGS (1)
  1. JAKAVI [Suspect]
     Active Substance: RUXOLITINIB
     Indication: MYELOFIBROSIS
     Dosage: 20 MG, QD (ONCE DAILY)
     Route: 048

REACTIONS (4)
  - Product prescribing error [Unknown]
  - Blood calcium increased [Unknown]
  - Inappropriate schedule of product administration [Unknown]
  - Musculoskeletal chest pain [Unknown]
